FAERS Safety Report 15367452 (Version 1)
Quarter: 2018Q3

REPORT INFORMATION
  Report Type: Spontaneous
  Country: US (occurrence: US)
  Receive Date: 20180910
  Receipt Date: 20180910
  Transmission Date: 20181010
  Serious: Yes (Hospitalization)
  Sender: FDA-Public Use
  Company Number: US-LPDUSPRD-20181623

PATIENT
  Age: 60 Year
  Sex: Female

DRUGS (6)
  1. LIDOCAINE HCL INJECTION, USP (0517?9402?01) [Suspect]
     Active Substance: LIDOCAINE HYDROCHLORIDE
     Dosage: 0.5MG/KG/H
     Route: 042
  2. ACETAMINOPHEN. [Concomitant]
     Active Substance: ACETAMINOPHEN
     Dosage: UNKNOWN AS NEEDED
     Route: 065
  3. GABAPENTIN. [Concomitant]
     Active Substance: GABAPENTIN
     Dosage: 400 MG Q8H
     Route: 065
  4. COCAINE [Suspect]
     Active Substance: COCAINE
     Dosage: 4% EVERY 6 HOUR
     Route: 061
  5. OXYCONTIN [Suspect]
     Active Substance: OXYCODONE HYDROCHLORIDE
     Dosage: UNKNOWN BASAL
     Route: 065
  6. HYDROMORPHONE [Suspect]
     Active Substance: HYDROMORPHONE
     Dosage: UNKNOWN
     Route: 042

REACTIONS (2)
  - Off label use [Unknown]
  - Encephalopathy [Unknown]
